FAERS Safety Report 20718116 (Version 2)
Quarter: 2022Q2

REPORT INFORMATION
  Report Type: Spontaneous
  Country: US (occurrence: US)
  Receive Date: 20220418
  Receipt Date: 20220520
  Transmission Date: 20220720
  Serious: No
  Sender: FDA-Public Use
  Company Number: US-SA-SAC20220414000802

PATIENT
  Sex: Male

DRUGS (2)
  1. DUPIXENT [Suspect]
     Active Substance: DUPILUMAB
     Indication: Dermatitis atopic
     Dosage: 300 MG, QOW
     Route: 058
     Dates: start: 20200526
  2. PLAVIX [Suspect]
     Active Substance: CLOPIDOGREL BISULFATE

REACTIONS (6)
  - Faeces discoloured [Not Recovered/Not Resolved]
  - Abdominal pain [Not Recovered/Not Resolved]
  - Eye irritation [Unknown]
  - Eye pruritus [Unknown]
  - Blepharitis [Unknown]
  - Arthralgia [Unknown]
